APPROVED DRUG PRODUCT: TOLECTIN
Active Ingredient: TOLMETIN SODIUM
Strength: EQ 200MG BASE
Dosage Form/Route: TABLET;ORAL
Application: N017628 | Product #001
Applicant: ORTHO MCNEIL JANSSEN PHARMACEUTICALS INC
Approved: Approved Prior to Jan 1, 1982 | RLD: Yes | RS: No | Type: DISCN